FAERS Safety Report 15361024 (Version 1)
Quarter: 2018Q3

REPORT INFORMATION
  Report Type: Spontaneous
  Country: US (occurrence: US)
  Receive Date: 20180907
  Receipt Date: 20180907
  Transmission Date: 20181010
  Serious: Yes (Hospitalization)
  Sender: FDA-Public Use
  Company Number: US-SA-2018SA244475

PATIENT
  Sex: Male

DRUGS (16)
  1. FOSRENOL [Concomitant]
     Active Substance: LANTHANUM CARBONATE
  2. DIAZEPAM. [Concomitant]
     Active Substance: DIAZEPAM
  3. NORCO [Concomitant]
     Active Substance: ACETAMINOPHEN\HYDROCODONE BITARTRATE
  4. TOLTERODINE [Concomitant]
     Active Substance: TOLTERODINE
  5. DULOXETINE. [Concomitant]
     Active Substance: DULOXETINE
  6. GABAPENTIN. [Concomitant]
     Active Substance: GABAPENTIN
  7. METOPROLOL. [Concomitant]
     Active Substance: METOPROLOL
  8. METOPROL XL [Concomitant]
  9. REBIF [Concomitant]
     Active Substance: INTERFERON BETA-1A
  10. AUBAGIO [Suspect]
     Active Substance: TERIFLUNOMIDE
     Dosage: 1 DF, QD
     Route: 048
     Dates: start: 20170704
  11. DULOXETINE. [Concomitant]
     Active Substance: DULOXETINE
  12. DUTASTERIDE. [Concomitant]
     Active Substance: DUTASTERIDE
  13. ATORVASTATIN CALCIUM. [Concomitant]
     Active Substance: ATORVASTATIN CALCIUM
     Dosage: UNK MG
  14. CIPRO [CIPROFLOXACIN] [Concomitant]
  15. TAMSULOSIN [Concomitant]
     Active Substance: TAMSULOSIN
  16. METFORMIN [Concomitant]
     Active Substance: METFORMIN HYDROCHLORIDE

REACTIONS (1)
  - Back disorder [Not Recovered/Not Resolved]
